FAERS Safety Report 4679349-3 (Version None)
Quarter: 2005Q2

REPORT INFORMATION
  Report Type: 
  Country: None (occurrence: None)
  Receive Date: 20050602
  Receipt Date: 20050506
  Transmission Date: 20051028
  Serious: Yes (Other)
  Sender: FDA-Public Use
  Company Number: US-GLAXOSMITHKLINE-A0557654A

PATIENT
  Sex: Female

DRUGS (2)
  1. CEFUROXIME AXETIL [Suspect]
     Indication: MUSCULOSKELETAL PAIN
     Route: 048
  2. CEFTIN [Suspect]
     Indication: MUSCULOSKELETAL PAIN
     Route: 048

REACTIONS (6)
  - BLOOD PRESSURE DECREASED [None]
  - HEPATITIS [None]
  - HYPERSENSITIVITY [None]
  - NASAL CONGESTION [None]
  - PANCREATITIS [None]
  - RASH [None]
